FAERS Safety Report 6937187-2 (Version None)
Quarter: 2010Q3

REPORT INFORMATION
  Report Type: 
  Country: None (occurrence: None)
  Receive Date: 20100823
  Receipt Date: 20100811
  Transmission Date: 20110219
  Serious: Yes (Hospitalization)
  Sender: FDA-Public Use
  Company Number: A0862382A

PATIENT
  Age: 45 Year
  Sex: Female
  Weight: 109.1 kg

DRUGS (2)
  1. AVANDIA [Suspect]
     Route: 048
  2. METFORMIN [Concomitant]

REACTIONS (4)
  - CARDIAC FAILURE CONGESTIVE [None]
  - RENAL FAILURE CHRONIC [None]
  - SEPSIS [None]
  - SUICIDAL IDEATION [None]
